FAERS Safety Report 6268856-8 (Version None)
Quarter: 2009Q3

REPORT INFORMATION
  Report Type: 
  Country: None (occurrence: None)
  Receive Date: 20090715
  Receipt Date: 20081209
  Transmission Date: 20100115
  Serious: Yes (Death, Other)
  Sender: FDA-Public Use
  Company Number: US-AMGEN-QUU315323

PATIENT
  Sex: Female

DRUGS (4)
  1. ENBREL [Suspect]
     Indication: RHEUMATOID ARTHRITIS
     Route: 064
     Dates: start: 19990101, end: 20071201
  2. VITAMIN TAB [Concomitant]
     Route: 064
  3. METHOTREXATE [Concomitant]
     Dates: end: 20020101
  4. PHENERGAN [Concomitant]
     Route: 064

REACTIONS (8)
  - BREECH PRESENTATION [None]
  - CARDIAC FAILURE CONGESTIVE [None]
  - CARDIOMEGALY [None]
  - CONGENITAL TERATOMA [None]
  - INTRA-UTERINE DEATH [None]
  - PERICARDIAL EFFUSION [None]
  - PLEURAL EFFUSION [None]
  - UMBILICAL CORD VASCULAR DISORDER [None]
